FAERS Safety Report 14092156 (Version 1)
Quarter: 2017Q4

REPORT INFORMATION
  Report Type: Spontaneous
  Country: US (occurrence: US)
  Receive Date: 20171016
  Receipt Date: 20171016
  Transmission Date: 20180321
  Serious: No
  Sender: FDA-Public Use
  Company Number: US-PFIZER INC-2017444141

PATIENT
  Age: 41 Year
  Sex: Female

DRUGS (1)
  1. EUCRISA [Suspect]
     Active Substance: CRISABOROLE
     Indication: CONDITION AGGRAVATED
     Dosage: UNK, (TWICE DAILY FOR TWO WEEKS ON AND TWO WEEKS OFF)
     Route: 061
     Dates: start: 20171012, end: 20171012

REACTIONS (1)
  - Burning sensation [Unknown]
